FAERS Safety Report 7093006-8 (Version None)
Quarter: 2010Q4

REPORT INFORMATION
  Report Type: 
  Country: None (occurrence: None)
  Receive Date: 20101018
  Receipt Date: 20100312
  Transmission Date: 20110411
  Serious: Yes (Other)
  Sender: FDA-Public Use
  Company Number: 2010S1000159

PATIENT
  Age: 17 Year
  Sex: Male

DRUGS (4)
  1. DARVOCET-N 100 [Suspect]
     Indication: TOOTH ABSCESS
     Dosage: PO
     Route: 048
     Dates: start: 20100201, end: 20100221
  2. ADVIL LIQUI-GELS [Suspect]
     Indication: TOOTH ABSCESS
     Dosage: 800 MG; PO
     Route: 048
     Dates: start: 20100201, end: 20100201
  3. VICODIN [Suspect]
     Indication: TOOTH ABSCESS
     Dates: end: 20100201
  4. TYLENOL (CAPLET) [Suspect]
     Indication: TOOTH ABSCESS
     Dates: end: 20100201

REACTIONS (4)
  - ABDOMINAL PAIN UPPER [None]
  - HEPATITIS [None]
  - HYPERHIDROSIS [None]
  - VOMITING [None]
